FAERS Safety Report 4399041-2 (Version None)
Quarter: 2004Q3

REPORT INFORMATION
  Report Type: 
  Country: None (occurrence: None)
  Receive Date: 20040712
  Receipt Date: 20040622
  Transmission Date: 20050211
  Serious: Yes (Other)
  Sender: FDA-Public Use
  Company Number: USA031050149

PATIENT
  Age: 49 Year
  Sex: Female
  Weight: 124 kg

DRUGS (5)
  1. FORTEO [Suspect]
     Indication: OSTEOPOROSIS
     Dosage: 20 UG/1 DAY
     Dates: start: 20030813
  2. FLEXERIL [Concomitant]
  3. DARVOCET-N 100 [Concomitant]
  4. OXYCODONE HCL [Concomitant]
  5. TUMS (CALCIUM CARBONATE) [Concomitant]

REACTIONS (19)
  - ACTIVITIES OF DAILY LIVING IMPAIRED [None]
  - ASTHENIA [None]
  - CARDIAC PACEMAKER MALFUNCTION [None]
  - CONDITION AGGRAVATED [None]
  - DIFFICULTY IN WALKING [None]
  - DYSSTASIA [None]
  - FATIGUE [None]
  - GRIP STRENGTH DECREASED [None]
  - HEART RATE INCREASED [None]
  - HYPOAESTHESIA [None]
  - IMPAIRED DRIVING ABILITY [None]
  - MIGRAINE [None]
  - MOTOR DYSFUNCTION [None]
  - MUSCLE CRAMP [None]
  - NODAL ARRHYTHMIA [None]
  - PHARMACEUTICAL PRODUCT COMPLAINT [None]
  - VISION BLURRED [None]
  - VISUAL DISTURBANCE [None]
  - WALKING AID USER [None]
